FAERS Safety Report 5888777-X (Version None)
Quarter: 2008Q3

REPORT INFORMATION
  Report Type: 
  Country: None (occurrence: None)
  Receive Date: 20080917
  Receipt Date: 20080917
  Transmission Date: 20090109
  Serious: Yes (Death, Hospitalization)
  Sender: FDA-Public Use
  Company Number: None

PATIENT
  Sex: Female
  Weight: 55 kg

DRUGS (1)
  1. CISPLATIN [Suspect]
     Dosage: 200 MG
     Dates: end: 20080804

REACTIONS (15)
  - ANAEMIA [None]
  - CANDIDIASIS [None]
  - CARDIAC ARREST [None]
  - CHEST DISCOMFORT [None]
  - CHEST PAIN [None]
  - HYPERGLYCAEMIA [None]
  - HYPOKALAEMIA [None]
  - HYPONATRAEMIA [None]
  - INCREASED BRONCHIAL SECRETION [None]
  - MYOCARDIAL INFARCTION [None]
  - NEUTROPENIA [None]
  - PULMONARY CONGESTION [None]
  - PYREXIA [None]
  - SEPSIS [None]
  - TACHYCARDIA [None]
